FAERS Safety Report 23141090 (Version 1)
Quarter: 2023Q4

REPORT INFORMATION
  Report Type: Spontaneous
  Country: US (occurrence: US)
  Receive Date: 20231103
  Receipt Date: 20231103
  Transmission Date: 20240109
  Serious: No
  Sender: FDA-Public Use
  Company Number: US-OPELLA-2023OHG010777

PATIENT
  Sex: Female

DRUGS (2)
  1. ACT ANTICAVITY FLUORIDE FRESH MINT [Suspect]
     Active Substance: SODIUM FLUORIDE
     Indication: Dental caries
     Route: 065
  2. ACT ANTICAVITY FLUORIDE FRESH MINT [Suspect]
     Active Substance: SODIUM FLUORIDE
     Indication: Dental care

REACTIONS (2)
  - Wrong technique in product usage process [Unknown]
  - No adverse event [Unknown]
